FAERS Safety Report 9119598 (Version 1)
Quarter: 2013Q1

REPORT INFORMATION
  Report Type: Report from Study
  Country: DK (occurrence: DK)
  Receive Date: 20130207
  Receipt Date: 20130207
  Transmission Date: 20140127
  Serious: Yes (Death, Congenital Anomaly, Other)
  Sender: FDA-Public Use
  Company Number: DK-COVIDIEN/TYCO HEALTHCARE/MALLINCKRODT-T201300757

PATIENT
  Sex: 0

DRUGS (3)
  1. METHYLIN [Suspect]
     Dosage: UNK
  2. HALOPERIDOL [Suspect]
     Dosage: UNK
  3. PHENYTOIN [Suspect]
     Dosage: UNK

REACTIONS (4)
  - Foetal exposure during pregnancy [Unknown]
  - Subdural haemorrhage [Fatal]
  - Multiple congenital abnormalities [Unknown]
  - Premature baby [Unknown]
